FAERS Safety Report 18049895 (Version 2)
Quarter: 2020Q3

REPORT INFORMATION
  Report Type: Spontaneous
  Country: CN (occurrence: CN)
  Receive Date: 20200721
  Receipt Date: 20200909
  Transmission Date: 20201103
  Serious: Yes (Life-Threatening, Other)
  Sender: FDA-Public Use
  Company Number: CN-PFIZER INC-2020275614

PATIENT
  Age: 78 Year
  Sex: Female
  Weight: 54 kg

DRUGS (2)
  1. AMLODIPINE BESILATE [Suspect]
     Active Substance: AMLODIPINE BESYLATE
     Indication: HYPERTENSION
     Dosage: 5 MG, 1X/DAY
     Route: 048
     Dates: start: 20200710, end: 20200710
  2. AMLODIPINE BESILATE [Suspect]
     Active Substance: AMLODIPINE BESYLATE
     Indication: DIZZINESS
     Dosage: 7.5 MG, DAILY (5MG IN THE MORNING AND 2.5MG IN THE AFTERNOON)
     Route: 048
     Dates: start: 20200711, end: 20200711

REACTIONS (12)
  - Laryngeal obstruction [Recovered/Resolved]
  - Off label use [Unknown]
  - Upper respiratory tract congestion [Unknown]
  - Laryngeal oedema [Recovering/Resolving]
  - Allergic respiratory symptom [Recovering/Resolving]
  - Lip swelling [Recovered/Resolved]
  - Dysphagia [Recovered/Resolved]
  - Oral discomfort [Unknown]
  - Palatal oedema [Recovering/Resolving]
  - Pharyngeal oedema [Recovering/Resolving]
  - Enlarged uvula [Recovered/Resolved]
  - Blood pressure inadequately controlled [Unknown]

NARRATIVE: CASE EVENT DATE: 202007
